FAERS Safety Report 16824304 (Version 1)
Quarter: 2019Q3

REPORT INFORMATION
  Report Type: Spontaneous
  Country: US (occurrence: US)
  Receive Date: 20190918
  Receipt Date: 20190918
  Transmission Date: 20191005
  Serious: Yes (Other)
  Sender: FDA-Public Use
  Company Number: US-TEVA-2019-US-1108797

PATIENT
  Sex: Male

DRUGS (2)
  1. PREDNISONE. [Suspect]
     Active Substance: PREDNISONE
     Indication: NEONATAL ALLOIMMUNE THROMBOCYTOPENIA
     Route: 064
  2. IMMUNOGLOBULIN (IVIG) [Suspect]
     Active Substance: HUMAN IMMUNOGLOBULIN G
     Indication: NEONATAL ALLOIMMUNE THROMBOCYTOPENIA
     Dosage: DOSE: 2G/KG
     Route: 064

REACTIONS (2)
  - Foetal exposure during pregnancy [Unknown]
  - Venous thrombosis neonatal [Recovered/Resolved]
